FAERS Safety Report 21681520 (Version 1)
Quarter: 2022Q4

REPORT INFORMATION
  Report Type: Spontaneous
  Country: TR (occurrence: TR)
  Receive Date: 20221205
  Receipt Date: 20221205
  Transmission Date: 20230112
  Serious: Yes (Death, Hospitalization, Other)
  Sender: FDA-Public Use
  Company Number: TR-STERISCIENCE B.V.-2022-ST-000087

PATIENT
  Age: 69 Year
  Sex: Male

DRUGS (21)
  1. MEROPENEM [Suspect]
     Active Substance: MEROPENEM
     Indication: Rhodococcus infection
     Dosage: 500 MG (3 TIMES 1)
     Route: 042
     Dates: start: 2021, end: 2021
  2. MEROPENEM [Suspect]
     Active Substance: MEROPENEM
     Indication: Pneumonia bacterial
  3. MEROPENEM [Suspect]
     Active Substance: MEROPENEM
     Indication: Bacteraemia
  4. VANCOMYCIN [Suspect]
     Active Substance: VANCOMYCIN
     Indication: Rhodococcus infection
     Dosage: 1 GRAM (2 TIMES 1)
     Route: 042
     Dates: start: 2021
  5. VANCOMYCIN [Suspect]
     Active Substance: VANCOMYCIN
     Indication: Bacteraemia
  6. VANCOMYCIN [Suspect]
     Active Substance: VANCOMYCIN
     Indication: Pneumonia bacterial
  7. MYCOPHENOLATE MOFETIL [Suspect]
     Active Substance: MYCOPHENOLATE MOFETIL
     Indication: Immunosuppressant drug therapy
     Dosage: 500 MILLIGRAM, QD
     Route: 065
  8. TACROLIMUS [Suspect]
     Active Substance: TACROLIMUS
     Indication: Immunosuppressant drug therapy
     Dosage: 0.5MG DAILY
     Route: 065
     Dates: end: 2021
  9. LEVOFLOXACIN [Suspect]
     Active Substance: LEVOFLOXACIN
     Indication: Rhodococcus infection
     Dosage: 500MG (2 TIMES 1)
     Route: 042
     Dates: start: 2021
  10. LEVOFLOXACIN [Suspect]
     Active Substance: LEVOFLOXACIN
     Indication: Pneumonia bacterial
  11. LEVOFLOXACIN [Suspect]
     Active Substance: LEVOFLOXACIN
     Indication: Bacteraemia
  12. AMPICILLIN SODIUM\SULBACTAM SODIUM [Suspect]
     Active Substance: AMPICILLIN SODIUM\SULBACTAM SODIUM
     Indication: Rhodococcus infection
     Dosage: UNK
     Route: 065
     Dates: start: 2021, end: 2021
  13. AMPICILLIN SODIUM\SULBACTAM SODIUM [Suspect]
     Active Substance: AMPICILLIN SODIUM\SULBACTAM SODIUM
     Indication: Pneumonia bacterial
  14. AMPICILLIN SODIUM\SULBACTAM SODIUM [Suspect]
     Active Substance: AMPICILLIN SODIUM\SULBACTAM SODIUM
     Indication: Bacteraemia
  15. IMIPENEM [Suspect]
     Active Substance: IMIPENEM
     Indication: Rhodococcus infection
     Dosage: 4 TIMES 500MG
     Route: 042
     Dates: start: 2021
  16. IMIPENEM [Suspect]
     Active Substance: IMIPENEM
     Indication: Pneumonia bacterial
  17. IMIPENEM [Suspect]
     Active Substance: IMIPENEM
     Indication: Bacteraemia
  18. COLISTIN [Suspect]
     Active Substance: COLISTIN
     Indication: Rhodococcus infection
     Dosage: MAXIMAL TOLERABLE DOSE
     Route: 042
     Dates: start: 2021
  19. COLISTIN [Suspect]
     Active Substance: COLISTIN
     Indication: Pneumonia bacterial
     Dosage: 2 X 150 MG MAINTENANCE DOSE
     Route: 042
     Dates: start: 2021
  20. COLISTIN [Suspect]
     Active Substance: COLISTIN
     Indication: Bacteraemia
  21. ENOXAPARIN [Concomitant]
     Active Substance: ENOXAPARIN
     Indication: Prophylaxis
     Dosage: 40 MILLIGRAM
     Route: 065
     Dates: start: 2021, end: 2021

REACTIONS (3)
  - Septic shock [Fatal]
  - Thrombocytopenia [Unknown]
  - Drug ineffective [Unknown]

NARRATIVE: CASE EVENT DATE: 20210101
